FAERS Safety Report 10073687 (Version 1)
Quarter: 2014Q2

REPORT INFORMATION
  Report Type: Spontaneous
  Country: US (occurrence: US)
  Receive Date: 20140411
  Receipt Date: 20140411
  Transmission Date: 20141212
  Serious: No
  Sender: FDA-Public Use
  Company Number: US-GILEAD-2014-0099382

PATIENT
  Sex: Female

DRUGS (4)
  1. LETAIRIS [Suspect]
     Indication: PRODUCT USED FOR UNKNOWN INDICATION
     Dosage: 5 MG, QD
     Route: 048
     Dates: start: 20130821
  2. TYVASO [Concomitant]
  3. WARFARIN [Concomitant]
  4. ADCIRCA [Concomitant]

REACTIONS (2)
  - Panic disorder [Unknown]
  - Dyspnoea [Unknown]
